FAERS Safety Report 16138820 (Version 1)
Quarter: 2019Q2

REPORT INFORMATION
  Report Type: Spontaneous
  Country: GB (occurrence: GB)
  Receive Date: 20190401
  Receipt Date: 20190401
  Transmission Date: 20190711
  Serious: No
  Sender: FDA-Public Use
  Company Number: GB-LUPIN HEALTHCARE (UK) LIMITED-2018-04368

PATIENT
  Sex: Female

DRUGS (3)
  1. SERTRALINE [Suspect]
     Active Substance: SERTRALINE HYDROCHLORIDE
     Indication: STRESS
     Dosage: 100 MG, UNK
     Route: 065
     Dates: start: 201801
  2. PROPRANOLOL [Concomitant]
     Active Substance: PROPRANOLOL HYDROCHLORIDE
     Indication: PRODUCT USED FOR UNKNOWN INDICATION
     Dosage: UNK
     Route: 065
  3. SERTRALINE [Suspect]
     Active Substance: SERTRALINE HYDROCHLORIDE
     Indication: ANXIETY
     Dosage: 50 MG, UNK
     Route: 065
     Dates: start: 201601, end: 201801

REACTIONS (6)
  - Tooth disorder [Unknown]
  - Bruxism [Unknown]
  - Tooth extraction [Unknown]
  - Bone loss [Unknown]
  - Gingival pain [Unknown]
  - Loose tooth [Unknown]
